FAERS Safety Report 9241725 (Version 1)
Quarter: 2013Q2

REPORT INFORMATION
  Report Type: Spontaneous
  Country: US (occurrence: US)
  Receive Date: 20130419
  Receipt Date: 20130419
  Transmission Date: 20140414
  Serious: Yes (Hospitalization)
  Sender: FDA-Public Use
  Company Number: US-COVIDIEN/TYCO HEALTHCARE/MALLINCKRODT-T201301624

PATIENT
  Sex: Male

DRUGS (1)
  1. GABLOFEN [Suspect]
     Indication: MUSCLE SPASTICITY
     Dosage: 850 MCG/DAY
     Route: 037

REACTIONS (5)
  - Underdose [Unknown]
  - Rhabdomyolysis [Unknown]
  - Muscle spasticity [Unknown]
  - Drug ineffective [Unknown]
  - Device failure [Unknown]
